FAERS Safety Report 17306308 (Version 2)
Quarter: 2020Q1

REPORT INFORMATION
  Report Type: Spontaneous
  Country: NL (occurrence: NL)
  Receive Date: 20200123
  Receipt Date: 20200127
  Transmission Date: 20200409
  Serious: Yes (Other)
  Sender: FDA-Public Use
  Company Number: NL-MYLANLABS-2020M1006727

PATIENT
  Age: 61 Year
  Sex: Male

DRUGS (1)
  1. RANITIDINE. [Suspect]
     Active Substance: RANITIDINE
     Indication: GASTROOESOPHAGEAL REFLUX DISEASE
     Dosage: 2-3D1T
     Route: 048
     Dates: start: 20140612, end: 20191008

REACTIONS (4)
  - Malignant melanoma [Recovered/Resolved]
  - Prostate cancer [Recovered/Resolved]
  - Basal cell carcinoma [Recovered/Resolved]
  - Neoplasm malignant [Recovered/Resolved]

NARRATIVE: CASE EVENT DATE: 20160205
